FAERS Safety Report 4718371-5 (Version None)
Quarter: 2005Q3

REPORT INFORMATION
  Report Type: 
  Country: None (occurrence: None)
  Receive Date: 20050720
  Receipt Date: 20050505
  Transmission Date: 20060218
  Serious: Yes (Hospitalization)
  Sender: FDA-Public Use
  Company Number: US-GLAXOSMITHKLINE-A0557345A

PATIENT
  Age: 39 Year
  Sex: Female
  Weight: 68 kg

DRUGS (5)
  1. BC HEADACHE POWDER [Suspect]
     Indication: PAIN
     Route: 048
  2. KEFLEX [Concomitant]
  3. CELEBREX [Concomitant]
  4. PLAVIX [Concomitant]
  5. IBUPROFEN [Concomitant]

REACTIONS (24)
  - ASTHENIA [None]
  - BACK PAIN [None]
  - CEREBROVASCULAR ACCIDENT [None]
  - CHEST PAIN [None]
  - DIFFICULTY IN WALKING [None]
  - DISTURBANCE IN ATTENTION [None]
  - DYSARTHRIA [None]
  - DYSPNOEA [None]
  - FACIAL PARESIS [None]
  - GAIT DISTURBANCE [None]
  - HEADACHE [None]
  - HEMIPARESIS [None]
  - HYPOAESTHESIA [None]
  - INTRAOCULAR PRESSURE TEST [None]
  - LETHARGY [None]
  - MIGRAINE WITH AURA [None]
  - MUSCLE STRAIN [None]
  - NAUSEA [None]
  - PARALYSIS [None]
  - PHONOPHOBIA [None]
  - PHOTOPHOBIA [None]
  - RETINAL DISORDER [None]
  - SENSORY LOSS [None]
  - VOMITING [None]
